FAERS Safety Report 7545101-4 (Version None)
Quarter: 2011Q2

REPORT INFORMATION
  Report Type: 
  Country: None (occurrence: None)
  Receive Date: 20110606
  Receipt Date: 20110523
  Transmission Date: 20111010
  Serious: Yes (Hospitalization, Other)
  Sender: FDA-Public Use
  Company Number: 2011P1006209

PATIENT
  Age: 52 Year
  Sex: Female

DRUGS (19)
  1. WARFARIN SODIUM [Suspect]
     Indication: THROMBOSIS
     Dosage: SEE IMAGE
     Route: 048
     Dates: start: 20110412, end: 20110401
  2. WARFARIN SODIUM [Suspect]
     Indication: THROMBOSIS
     Dosage: SEE IMAGE
     Route: 048
     Dates: start: 20110406, end: 20110428
  3. WARFARIN SODIUM [Suspect]
     Indication: THROMBOSIS
     Dosage: SEE IMAGE
     Route: 048
     Dates: start: 20110406, end: 20110428
  4. WARFARIN SODIUM [Suspect]
     Indication: THROMBOSIS
     Dosage: SEE IMAGE
     Route: 048
     Dates: end: 20110301
  5. WARFARIN SODIUM [Suspect]
     Indication: THROMBOSIS
     Dosage: SEE IMAGE
     Route: 048
     Dates: start: 20110412, end: 20110401
  6. WARFARIN SODIUM [Suspect]
     Indication: THROMBOSIS
     Dosage: SEE IMAGE
     Route: 048
     Dates: start: 20110509
  7. WARFARIN SODIUM [Suspect]
     Indication: THROMBOSIS
     Dosage: SEE IMAGE
     Route: 048
     Dates: start: 20110428
  8. WARFARIN SODIUM [Suspect]
     Indication: THROMBOSIS
     Dosage: SEE IMAGE
     Route: 048
     Dates: start: 20110509
  9. FISH OIL [Concomitant]
  10. IMITREX [Concomitant]
  11. TOPAMAX [Concomitant]
  12. BENADRYL [Concomitant]
  13. MOTRIN [Concomitant]
  14. MATURE MULTIVITAMIN [Concomitant]
  15. CYMBALTA [Concomitant]
  16. HEPARIN [Suspect]
     Dates: start: 20110301, end: 20110301
  17. FIBER TABLETS [Concomitant]
  18. RANITIDINE [Concomitant]
  19. ULTRAM [Concomitant]

REACTIONS (33)
  - HYPOPHAGIA [None]
  - WITHDRAWAL SYNDROME [None]
  - INTERNATIONAL NORMALISED RATIO INCREASED [None]
  - FIBROMYALGIA [None]
  - CONDITION AGGRAVATED [None]
  - GASTROOESOPHAGEAL REFLUX DISEASE [None]
  - EYE COMPLICATION ASSOCIATED WITH DEVICE [None]
  - PANCREATITIS [None]
  - ABDOMINAL PAIN [None]
  - DIVERTICULITIS [None]
  - BLOOD GLUCOSE INCREASED [None]
  - PROTHROMBIN TIME SHORTENED [None]
  - ESCHERICHIA TEST POSITIVE [None]
  - INTESTINAL OBSTRUCTION [None]
  - DIARRHOEA [None]
  - ABDOMINAL DISCOMFORT [None]
  - MIGRAINE [None]
  - DRUG INEFFECTIVE [None]
  - ARTHRALGIA [None]
  - ILEUS [None]
  - HAEMOCONCENTRATION [None]
  - URINARY TRACT INFECTION [None]
  - SUPERFICIAL INJURY OF EYE [None]
  - DEPRESSION [None]
  - PROTHROMBIN TIME PROLONGED [None]
  - NAUSEA [None]
  - PRODUCT QUALITY ISSUE [None]
  - MALAISE [None]
  - LIPASE INCREASED [None]
  - DYSPHAGIA [None]
  - EYE INFECTION [None]
  - VOMITING [None]
  - HYPOGLYCAEMIA [None]
